FAERS Safety Report 11154859 (Version 1)
Quarter: 2015Q2

REPORT INFORMATION
  Report Type: Report from Study
  Country: NL (occurrence: NL)
  Receive Date: 20150602
  Receipt Date: 20150602
  Transmission Date: 20150821
  Serious: Yes (Death, Hospitalization, Other)
  Sender: FDA-Public Use
  Company Number: NL-ROCHE-1573382

PATIENT
  Age: 76 Year
  Sex: Male

DRUGS (22)
  1. RITUXIMAB [Suspect]
     Active Substance: RITUXIMAB
     Dosage: LAST DOSE PRIOR TO THE SAE 08/SEP/2010, DAY 1, CYCLE 2
     Route: 042
     Dates: start: 20100908
  2. RITUXIMAB [Suspect]
     Active Substance: RITUXIMAB
     Dosage: MAINTAINANCE THERAPY, LAST DOSE PRIOR TO THE SAE 12/JAN/2011 ON DAY 1 CYCLE 2
     Route: 042
  3. CYCLOPHOSPHAMIDE. [Suspect]
     Active Substance: CYCLOPHOSPHAMIDE
     Dosage: LAST DOSE PRIOR TO THE SAE 12/JAN/2011, DAY 1, CYCLE 8
     Route: 065
     Dates: start: 20110112
  4. DOXORUBICIN [Suspect]
     Active Substance: DOXORUBICIN
     Dosage: LAST DOSE PRIOR TO THE SAE 12/JAN/2011
     Route: 065
     Dates: start: 20100817
  5. VINCRISTINE [Suspect]
     Active Substance: VINCRISTINE
     Route: 065
  6. PREDNISONE. [Suspect]
     Active Substance: PREDNISONE
     Indication: MANTLE CELL LYMPHOMA
     Dosage: LAST DOSE PRIOR TO THE SAE 21/AUG/2010, CYCLE 1, DAY 1
     Route: 065
     Dates: start: 20100817
  7. RITUXIMAB [Suspect]
     Active Substance: RITUXIMAB
     Indication: MANTLE CELL LYMPHOMA
     Dosage: LAST DOSE PRIOR TO THE SAE 17/AUG/2010 CYCLE 1, DAY 1
     Route: 042
     Dates: start: 20100817
  8. PREDNISONE. [Suspect]
     Active Substance: PREDNISONE
     Dosage: LAST DOSE PRIOR TO THE SAE 12/SEP/2010, DAY 1, CYCLE 2
     Route: 065
     Dates: start: 20100908
  9. CYCLOPHOSPHAMIDE. [Suspect]
     Active Substance: CYCLOPHOSPHAMIDE
     Indication: MANTLE CELL LYMPHOMA
     Dosage: LAST DOSE PRIOR TO THE SAE 17/AUG/2010  CYCLE 1, DAY 1
     Route: 065
     Dates: start: 20100817
  10. DOXORUBICIN [Suspect]
     Active Substance: DOXORUBICIN
     Dosage: LAST DOSE PRIOR TO THE SAE 08/SEP/2010, DAY 1, CYCLE 2
     Route: 065
     Dates: start: 20100908
  11. DOXORUBICIN [Suspect]
     Active Substance: DOXORUBICIN
     Dosage: LAST DOSE PRIOR TO THE SAE 12/JAN/2011, ON DAY 1 CYCLE 2
     Route: 065
  12. CYCLOPHOSPHAMIDE. [Suspect]
     Active Substance: CYCLOPHOSPHAMIDE
     Dosage: LAST DOSE PRIOR TO THE SAE 08/SEP/2010, DAY 1, CYCLE 2
     Route: 065
     Dates: start: 20100908
  13. VINCRISTINE [Suspect]
     Active Substance: VINCRISTINE
     Dosage: LAST DOSE PRIOR TO THE SAE 12/JAN/2011, ON DAY 1 CYCLE 2
     Route: 065
  14. RITUXIMAB [Suspect]
     Active Substance: RITUXIMAB
     Dosage: LAST DOSE PRIOR TO THE SAE 12/JAN/2011, DAY 1, CYCLE 8
     Route: 042
     Dates: start: 20110112
  15. RITUXIMAB [Suspect]
     Active Substance: RITUXIMAB
     Dosage: MAINTENANCE THERAPY ON  02/MAY/2011
     Route: 042
     Dates: start: 20110307
  16. VINCRISTINE [Suspect]
     Active Substance: VINCRISTINE
     Indication: MANTLE CELL LYMPHOMA
     Dosage: LAST DOSE PRIOR TO THE SAE 17/AUG/2010, CYCLE 1, DAY 1
     Route: 065
     Dates: start: 20100817
  17. VINCRISTINE [Suspect]
     Active Substance: VINCRISTINE
     Dosage: LAST DOSE PRIOR TO THE SAE 08/SEP/2010, DAY 1, CYCLE 2
     Route: 065
     Dates: start: 20100908
  18. ZOFRAN [Suspect]
     Active Substance: ONDANSETRON HYDROCHLORIDE
     Indication: CONSTIPATION
     Route: 065
  19. CYCLOPHOSPHAMIDE. [Suspect]
     Active Substance: CYCLOPHOSPHAMIDE
     Dosage: LAST DOSE PRIOR TO THE SAE 12/JAN/2011, ON DAY 1 CYCLE 2
     Route: 065
  20. DOXORUBICIN [Suspect]
     Active Substance: DOXORUBICIN
     Indication: MANTLE CELL LYMPHOMA
     Dosage: LAST DOSE PRIOR TO THE SAE 17/AUG/2010, CYCLE 1, DAY 1
     Route: 065
     Dates: start: 20100817
  21. DOXORUBICIN [Suspect]
     Active Substance: DOXORUBICIN
     Dosage: LAST DOSE PRIOR TO THE SAE 12/JAN/2011, DAY 1, CYCLE 8
     Route: 065
     Dates: start: 20110112
  22. PREDNISONE. [Suspect]
     Active Substance: PREDNISONE
     Dosage: LAST DOSE PRIOR TO THE SAE 16/JAN/2011, DAY 1, CYCLE 8
     Route: 065
     Dates: start: 20110112

REACTIONS (4)
  - Cardiac failure [Fatal]
  - Abdominal pain [Unknown]
  - Constipation [Recovered/Resolved]
  - Febrile neutropenia [Recovered/Resolved]

NARRATIVE: CASE EVENT DATE: 20100826
